FAERS Safety Report 8619860-3 (Version None)
Quarter: 2012Q3

REPORT INFORMATION
  Report Type: 
  Country: None (occurrence: None)
  Receive Date: 20120824
  Receipt Date: 20120815
  Transmission Date: 20120928
  Serious: Yes (Hospitalization, Other)
  Sender: FDA-Public Use
  Company Number: US-009507513-1204USA01001

PATIENT

DRUGS (3)
  1. FOSAMAX [Suspect]
     Indication: OSTEOPENIA
     Dosage: 70 MG, QW
     Route: 048
     Dates: start: 20000101, end: 20100301
  2. FOSAMAX [Suspect]
     Indication: OSTEOPOROSIS
  3. CALCIUM (UNSPECIFIED) [Concomitant]
     Dosage: 1000 MG, QD
     Dates: start: 20070101

REACTIONS (7)
  - FEMUR FRACTURE [None]
  - ANKLE FRACTURE [None]
  - INTRAMEDULLARY ROD INSERTION [None]
  - ANKLE OPERATION [None]
  - LOW TURNOVER OSTEOPATHY [None]
  - FALL [None]
  - FRACTURE [None]
